FAERS Safety Report 20857649 (Version 2)
Quarter: 2022Q3

REPORT INFORMATION
  Report Type: Spontaneous
  Country: CL (occurrence: CL)
  Receive Date: 20220521
  Receipt Date: 20220729
  Transmission Date: 20221026
  Serious: Yes (Other)
  Sender: FDA-Public Use
  Company Number: CL-NOVARTISPH-NVSC2022CL111900

PATIENT
  Sex: Female

DRUGS (2)
  1. SECUKINUMAB [Suspect]
     Active Substance: SECUKINUMAB
     Indication: Spondylitis
     Dosage: UNK (4 WEEKS)
     Route: 065
  2. SECUKINUMAB [Suspect]
     Active Substance: SECUKINUMAB
     Indication: Psoriatic arthropathy

REACTIONS (3)
  - Abortion [Unknown]
  - Maternal exposure during pregnancy [Unknown]
  - Product use in unapproved indication [Unknown]
